FAERS Safety Report 16067517 (Version 1)
Quarter: 2019Q1

REPORT INFORMATION
  Report Type: Spontaneous
  Country: IL (occurrence: IL)
  Receive Date: 20190313
  Receipt Date: 20190313
  Transmission Date: 20190418
  Serious: Yes (Other)
  Sender: FDA-Public Use
  Company Number: IL-TEVA-2019-IL-1022924

PATIENT
  Age: 29 Year
  Sex: Male

DRUGS (1)
  1. MOXYPEN FORTE 250 MG POWDER FOR SUSPENSION [Suspect]
     Active Substance: AMOXICILLIN

REACTIONS (4)
  - Rash [Unknown]
  - Ocular hyperaemia [Unknown]
  - Erythema [Unknown]
  - Erythema [None]
